FAERS Safety Report 20903042 (Version 2)
Quarter: 2022Q2

REPORT INFORMATION
  Report Type: Spontaneous
  Country: CA (occurrence: CA)
  Receive Date: 20220601
  Receipt Date: 20220613
  Transmission Date: 20220720
  Serious: Yes (Other)
  Sender: FDA-Public Use
  Company Number: CA-MLMSERVICE-20220523-3574413-1

PATIENT
  Age: 70 Year
  Sex: Female

DRUGS (11)
  1. CISPLATIN [Interacting]
     Active Substance: CISPLATIN
     Indication: Small cell lung cancer
  2. DOCETAXEL [Interacting]
     Active Substance: DOCETAXEL
     Indication: Small cell lung cancer
  3. PACLITAXEL [Interacting]
     Active Substance: PACLITAXEL
     Indication: Small cell lung cancer
  4. NABILONE [Interacting]
     Active Substance: NABILONE
     Indication: Nausea
     Dosage: 0.5 MG, 1X/DAY
     Route: 048
  5. NABILONE [Interacting]
     Active Substance: NABILONE
     Indication: Neuralgia
     Dosage: 1 MG, 1X/DAY
     Route: 048
  6. NABILONE [Interacting]
     Active Substance: NABILONE
     Indication: Vomiting
     Dosage: 2 MG, 1X/DAY
     Route: 048
  7. BISOPROLOL [Concomitant]
     Active Substance: BISOPROLOL
  8. HALDOL [Concomitant]
     Active Substance: HALOPERIDOL
  9. LORAZEPAM [Concomitant]
     Active Substance: LORAZEPAM
  10. DOMPERIDONE [Concomitant]
     Active Substance: DOMPERIDONE
  11. BUPROPION [Concomitant]
     Active Substance: BUPROPION

REACTIONS (12)
  - Drug interaction [Unknown]
  - Toxicity to various agents [Recovered/Resolved]
  - Cannabinoid hyperemesis syndrome [Recovered/Resolved]
  - Cognitive disorder [Unknown]
  - Renal function test abnormal [Recovered/Resolved]
  - Neuralgia [Unknown]
  - Decreased appetite [Unknown]
  - Vomiting [Recovered/Resolved]
  - Alopecia [Unknown]
  - Nausea [Recovered/Resolved]
  - Diarrhoea [Unknown]
  - Oral pain [Unknown]
